FAERS Safety Report 7792276-8 (Version None)
Quarter: 2011Q3

REPORT INFORMATION
  Report Type: 
  Country: None (occurrence: None)
  Receive Date: 20110929
  Receipt Date: 20110919
  Transmission Date: 20111222
  Serious: Yes (Other)
  Sender: FDA-Public Use
  Company Number: 2011P1008735

PATIENT
  Sex: Male

DRUGS (1)
  1. AMPHETAMINE AND DEXTROAMPHETAMINE SALTS [Suspect]
     Dosage: 30 MG

REACTIONS (6)
  - SUICIDAL IDEATION [None]
  - RESPIRATORY DISTRESS [None]
  - FEELING ABNORMAL [None]
  - PRODUCT QUALITY ISSUE [None]
  - CHEST PAIN [None]
  - LOSS OF CONSCIOUSNESS [None]
